FAERS Safety Report 8525697-6 (Version None)
Quarter: 2012Q3

REPORT INFORMATION
  Report Type: 
  Country: None (occurrence: None)
  Receive Date: 20120720
  Receipt Date: 20120709
  Transmission Date: 20120928
  Serious: No
  Sender: FDA-Public Use
  Company Number: US-ASTRAZENECA-2010SE05518

PATIENT
  Age: 67 Year
  Sex: Female
  Weight: 56.7 kg

DRUGS (5)
  1. ZOMIG [Suspect]
     Route: 048
  2. ZOMIG [Suspect]
     Route: 048
  3. ZOMIG [Suspect]
     Indication: MIGRAINE
     Route: 048
     Dates: start: 20000101
  4. ZOMIG [Suspect]
     Indication: HEADACHE
     Route: 048
     Dates: start: 20000101
  5. COMPOUNDED NATURAL FEMALE HORMONE [Concomitant]

REACTIONS (6)
  - HYPERTHYROIDISM [None]
  - FEELING ABNORMAL [None]
  - DRUG INTOLERANCE [None]
  - HEADACHE [None]
  - INTENTIONAL DRUG MISUSE [None]
  - DRUG INEFFECTIVE [None]
